FAERS Safety Report 16926006 (Version 3)
Quarter: 2025Q4

REPORT INFORMATION
  Report Type: Spontaneous
  Country: EU (occurrence: EU)
  Receive Date: 20191016
  Receipt Date: 20251029
  Transmission Date: 20260117
  Serious: Yes (Other)
  Sender: TAKEDA
  Company Number: EU-002147023-PHHY2019GR215969

PATIENT
  Age: 36 Year
  Sex: Female

DRUGS (12)
  1. MESALAMINE [Suspect]
     Active Substance: MESALAMINE
     Indication: Colitis ulcerative
     Dosage: 3 GRAM, QD
     Route: 061
  2. MESALAMINE [Suspect]
     Active Substance: MESALAMINE
     Dosage: 3.6 GRAM, QD
  3. PREDNISOLONE [Suspect]
     Active Substance: PREDNISOLONE
     Indication: Colitis ulcerative
     Dosage: 50 MILLIGRAM, QD
  4. PREDNISOLONE [Suspect]
     Active Substance: PREDNISOLONE
     Dosage: 40 MILLIGRAM, QD
  5. AMLODIPINE [Suspect]
     Active Substance: AMLODIPINE BESYLATE
     Indication: Pre-eclampsia
     Dosage: UNK
  6. AMLODIPINE [Suspect]
     Active Substance: AMLODIPINE BESYLATE
     Indication: Blood pressure increased
  7. VANCOMYCIN [Suspect]
     Active Substance: VANCOMYCIN
     Indication: Colitis ulcerative
     Dosage: 125 MILLIGRAM
  8. CYCLOSPORINE [Suspect]
     Active Substance: CYCLOSPORINE
     Indication: Colitis ulcerative
     Dosage: 300 MILLIGRAM, QD
  9. CYCLOSPORINE [Suspect]
     Active Substance: CYCLOSPORINE
     Dosage: 100 MILLIGRAM, QD
  10. CYCLOSPORINE [Suspect]
     Active Substance: CYCLOSPORINE
     Dosage: 200 MILLIGRAM, QD
  11. CHOLECALCIFEROL [Concomitant]
     Active Substance: CHOLECALCIFEROL
     Indication: Product used for unknown indication
  12. CALCIUM [Concomitant]
     Active Substance: CALCIUM
     Indication: Product used for unknown indication

REACTIONS (12)
  - Premature delivery [Unknown]
  - Product use in unapproved indication [Unknown]
  - Abdominal pain [Unknown]
  - Pyrexia [Unknown]
  - Pseudomonas infection [Unknown]
  - Glutamate dehydrogenase level abnormal [Unknown]
  - Clostridium test positive [Unknown]
  - Pre-eclampsia [Unknown]
  - Amniotic cavity infection [Recovered/Resolved]
  - Drug ineffective [Unknown]
  - Maternal exposure during pregnancy [Unknown]
  - Bacteraemia [Unknown]
